FAERS Safety Report 23169966 (Version 2)
Quarter: 2023Q4

REPORT INFORMATION
  Report Type: Spontaneous
  Country: IT (occurrence: IT)
  Receive Date: 20231110
  Receipt Date: 20231205
  Transmission Date: 20240109
  Serious: Yes (Other)
  Sender: FDA-Public Use
  Company Number: IT-MINISAL02-952471

PATIENT
  Age: 18 Year
  Sex: Female
  Weight: 53 kg

DRUGS (1)
  1. ACETAMINOPHEN [Suspect]
     Active Substance: ACETAMINOPHEN
     Indication: Drug abuse
     Dosage: 17 DF (17 X 500 MG TABLETS TAKEN)
     Route: 048
     Dates: start: 20231024, end: 20231024

REACTIONS (2)
  - Drug abuse [Recovered/Resolved]
  - Nausea [Recovered/Resolved]

NARRATIVE: CASE EVENT DATE: 20231024
